FAERS Safety Report 17797799 (Version 2)
Quarter: 2020Q2

REPORT INFORMATION
  Report Type: Spontaneous
  Country: IN (occurrence: IN)
  Receive Date: 20200518
  Receipt Date: 20200526
  Transmission Date: 20200714
  Serious: Yes (Hospitalization, Other)
  Sender: FDA-Public Use
  Company Number: IN-TORRENT-00002523

PATIENT
  Age: 16 Year
  Sex: Female

DRUGS (1)
  1. TOPIRAMATE. [Suspect]
     Active Substance: TOPIRAMATE
     Indication: WEIGHT DECREASED
     Dosage: 1000 MG, INCREASED DOSE, 4-2-4, TABLETS

REACTIONS (4)
  - Drug abuse [Unknown]
  - Weight decreased [Recovered/Resolved]
  - Self-medication [Unknown]
  - Intentional product use issue [Unknown]
